FAERS Safety Report 18028473 (Version 3)
Quarter: 2020Q3

REPORT INFORMATION
  Report Type: Spontaneous
  Country: BR (occurrence: BR)
  Receive Date: 20200715
  Receipt Date: 20200728
  Transmission Date: 20201103
  Serious: Yes (Life-Threatening, Other)
  Sender: FDA-Public Use
  Company Number: NVSC2020BR177750

PATIENT
  Sex: Female

DRUGS (2)
  1. AMOXICILINA + CLAVULANATO DE POTASSIO [Suspect]
     Active Substance: AMOXICILLIN\CLAVULANATE POTASSIUM
     Indication: SKIN DISCOLOURATION
     Dosage: UNK
     Route: 065
  2. AMOXICILINA + CLAVULANATO DE POTASSIO [Suspect]
     Active Substance: AMOXICILLIN\CLAVULANATE POTASSIUM
     Indication: INFLAMMATION

REACTIONS (8)
  - Product use in unapproved indication [Unknown]
  - Near death experience [Unknown]
  - Malaise [Unknown]
  - Drug ineffective [Unknown]
  - Presyncope [Unknown]
  - Nausea [Unknown]
  - Dizziness [Unknown]
  - Product physical issue [Unknown]
